FAERS Safety Report 22879799 (Version 3)
Quarter: 2023Q4

REPORT INFORMATION
  Report Type: Report from Study
  Country: US (occurrence: US)
  Receive Date: 20230829
  Receipt Date: 20231121
  Transmission Date: 20240110
  Serious: No
  Sender: FDA-Public Use
  Company Number: US-002147023-NVSC2023US186742

PATIENT
  Sex: Male

DRUGS (1)
  1. ENTRESTO [Suspect]
     Active Substance: SACUBITRIL\VALSARTAN
     Indication: Product used for unknown indication
     Dosage: UNK
     Route: 065
     Dates: start: 202211

REACTIONS (6)
  - Blood pressure fluctuation [Unknown]
  - Visual impairment [Unknown]
  - Product dose omission issue [Unknown]
  - Weight fluctuation [Unknown]
  - Stress [Unknown]
  - Peripheral swelling [Unknown]
